FAERS Safety Report 7752663-0 (Version None)
Quarter: 2011Q3

REPORT INFORMATION
  Report Type: 
  Country: None (occurrence: None)
  Receive Date: 20110915
  Receipt Date: 20110909
  Transmission Date: 20111222
  Serious: Yes (Death, Other)
  Sender: FDA-Public Use
  Company Number: BR-SANOFI-AVENTIS-2011SA053219

PATIENT
  Sex: Male

DRUGS (4)
  1. CORTICOSTEROIDS [Concomitant]
  2. ANTIBIOTICS [Concomitant]
  3. OTHER ANTIINFLAMMATORY AGENTS IN COMB. [Concomitant]
  4. JEVTANA KIT [Suspect]
     Indication: PROSTATE CANCER

REACTIONS (2)
  - MULTI-ORGAN FAILURE [None]
  - STEVENS-JOHNSON SYNDROME [None]
